FAERS Safety Report 16927778 (Version 1)
Quarter: 2019Q4

REPORT INFORMATION
  Report Type: Spontaneous
  Country: US (occurrence: US)
  Receive Date: 20191016
  Receipt Date: 20191016
  Transmission Date: 20200122
  Serious: No
  Sender: FDA-Public Use
  Company Number: US-GLAXOSMITHKLINE-US2019185347

PATIENT
  Age: 53 Year
  Sex: Female

DRUGS (1)
  1. FLONASE [Suspect]
     Active Substance: FLUTICASONE PROPIONATE
     Indication: HYPERSENSITIVITY
     Dosage: 2 SPRAYS IN EACH SIDE
     Route: 045
     Dates: start: 20191010, end: 20191011

REACTIONS (4)
  - Nausea [Recovered/Resolved]
  - Upper-airway cough syndrome [Recovered/Resolved]
  - Drug ineffective [Unknown]
  - Malaise [Recovered/Resolved]

NARRATIVE: CASE EVENT DATE: 20191010
